FAERS Safety Report 22586201 (Version 1)
Quarter: 2023Q2

REPORT INFORMATION
  Report Type: Spontaneous
  Country: US (occurrence: US)
  Receive Date: 20230610
  Receipt Date: 20230610
  Transmission Date: 20230721
  Serious: Yes (Death, Hospitalization)
  Sender: FDA-Public Use
  Company Number: US-drreddys-LIT/USA/23/0166592

PATIENT
  Age: 41 Year
  Sex: Male

DRUGS (2)
  1. DEXAMETHASONE [Suspect]
     Active Substance: DEXAMETHASONE
     Indication: POEMS syndrome
     Dosage: 40MG WEEKLY
  2. DARATUMUMAB [Suspect]
     Active Substance: DARATUMUMAB
     Indication: POEMS syndrome
     Dosage: 16 MG/KG

REACTIONS (4)
  - Multiple organ dysfunction syndrome [Fatal]
  - POEMS syndrome [Unknown]
  - Condition aggravated [Unknown]
  - Drug ineffective for unapproved indication [Unknown]
